FAERS Safety Report 6744520-3 (Version None)
Quarter: 2010Q2

REPORT INFORMATION
  Report Type: 
  Country: None (occurrence: None)
  Receive Date: 20100527
  Receipt Date: 20100520
  Transmission Date: 20101027
  Serious: Yes (Other)
  Sender: FDA-Public Use
  Company Number: US-SHIRE-SPV1-2010-00929

PATIENT

DRUGS (6)
  1. GUANFACINE HYDROCHLORIDE [Suspect]
     Indication: ATTENTION DEFICIT/HYPERACTIVITY DISORDER
     Dosage: 1 MG, 1X/DAY:QD
     Route: 048
     Dates: start: 20100413, end: 20100101
  2. GUANFACINE HYDROCHLORIDE [Suspect]
     Dosage: 3 MG, 2X/DAY:
     Route: 048
     Dates: start: 20100428, end: 20100101
  3. GUANFACINE HYDROCHLORIDE [Suspect]
     Dosage: 2 MG, 1X/DAY:QD
     Route: 048
     Dates: start: 20100101, end: 20100101
  4. GUANFACINE HYDROCHLORIDE [Suspect]
     Dosage: 1 MG, 1X/DAY:QD
     Route: 048
     Dates: start: 20100101, end: 20100511
  5. PLACEBO [Suspect]
     Indication: ATTENTION DEFICIT/HYPERACTIVITY DISORDER
     Dosage: 1 MG, 1X/DAY:QD
     Route: 048
     Dates: start: 20100413, end: 20100427
  6. PLACEBO [Suspect]
     Dosage: 3 MG, 2X/DAY:BID IN THE AM
     Route: 048
     Dates: start: 20100428, end: 20100511

REACTIONS (2)
  - SELF-INJURIOUS IDEATION [None]
  - SUICIDAL IDEATION [None]
